FAERS Safety Report 8025162-9 (Version None)
Quarter: 2012Q1

REPORT INFORMATION
  Report Type: 
  Country: None (occurrence: None)
  Receive Date: 20120105
  Receipt Date: 20120103
  Transmission Date: 20120608
  Serious: Yes (Hospitalization)
  Sender: FDA-Public Use
  Company Number: US-GLAXOSMITHKLINE-A0930690A

PATIENT
  Age: 43 Year
  Sex: Female
  Weight: 90.9 kg

DRUGS (7)
  1. PHENTERMINE [Concomitant]
  2. BYETTA [Concomitant]
     Dates: start: 20090420
  3. LOTENSIN [Concomitant]
  4. ZOCOR [Concomitant]
  5. EFFEXOR [Concomitant]
  6. AVANDARYL [Suspect]
     Indication: DIABETES MELLITUS
     Dosage: 1TAB TWICE PER DAY
     Route: 048
     Dates: end: 20100712
  7. XANAX [Concomitant]

REACTIONS (2)
  - CORONARY ARTERY DISEASE [None]
  - MYOCARDIAL INFARCTION [None]
